FAERS Safety Report 4960318-0 (Version None)
Quarter: 2006Q1

REPORT INFORMATION
  Report Type: 
  Country: None (occurrence: None)
  Receive Date: 20060328
  Receipt Date: 20060315
  Transmission Date: 20060701
  Serious: Yes (Other)
  Sender: FDA-Public Use
  Company Number: 2006037224

PATIENT
  Sex: Female

DRUGS (3)
  1. VFEND [Suspect]
     Indication: ILL-DEFINED DISORDER
  2. CORTIMOXAZOLE (SULFAMETHOXAZOLE) (SULFAMETHOXAZOLE, TRIMETHOPRIM) [Concomitant]
  3. UNSPECIFIED TREATMENT (ALL OTHER THERAPEUTIC PRODUCTS) [Concomitant]

REACTIONS (1)
  - CEREBELLAR SYNDROME [None]
